FAERS Safety Report 21241304 (Version 1)
Quarter: 2022Q3

REPORT INFORMATION
  Report Type: Spontaneous
  Country: US (occurrence: US)
  Receive Date: 20220823
  Receipt Date: 20220823
  Transmission Date: 20221027
  Serious: No
  Sender: FDA-Public Use
  Company Number: US-BEH-2022148606

PATIENT
  Age: 23 Year
  Sex: Male

DRUGS (6)
  1. IDELVION [Suspect]
     Active Substance: COAGULATION FACTOR IX RECOMBINANT HUMAN
     Indication: Factor IX deficiency
     Dosage: 5800 INTERNATIONAL UNIT, BIW
     Route: 042
     Dates: start: 20190906
  2. IDELVION [Suspect]
     Active Substance: COAGULATION FACTOR IX RECOMBINANT HUMAN
     Indication: Factor IX deficiency
     Dosage: 5800 INTERNATIONAL UNIT, BIW
     Route: 042
     Dates: start: 20190906
  3. IDELVION [Suspect]
     Active Substance: COAGULATION FACTOR IX RECOMBINANT HUMAN
     Indication: Prophylaxis
     Dosage: 1 DOSAGE FORM
     Route: 042
     Dates: start: 20220626
  4. IDELVION [Suspect]
     Active Substance: COAGULATION FACTOR IX RECOMBINANT HUMAN
     Indication: Prophylaxis
     Dosage: 1 DOSAGE FORM
     Route: 042
     Dates: start: 20220626
  5. IDELVION [Suspect]
     Active Substance: COAGULATION FACTOR IX RECOMBINANT HUMAN
     Dosage: 1 DOSAGE FORM
     Route: 042
     Dates: start: 20220731
  6. IDELVION [Suspect]
     Active Substance: COAGULATION FACTOR IX RECOMBINANT HUMAN
     Dosage: 1 DOSAGE FORM
     Route: 042
     Dates: start: 20220731

REACTIONS (6)
  - Road traffic accident [Unknown]
  - Contusion [Unknown]
  - Contusion [Unknown]
  - No adverse event [Unknown]
  - Extra dose administered [Unknown]
  - Unevaluable event [Unknown]

NARRATIVE: CASE EVENT DATE: 20220626
